FAERS Safety Report 8927767 (Version 2)
Quarter: 2012Q4

REPORT INFORMATION
  Report Type: 
  Country: US (occurrence: US)
  Receive Date: 20121126
  Receipt Date: 20121221
  Transmission Date: 20130627
  Serious: No
  Sender: FDA-Public Use
  Company Number: US-VERTEX PHARMACEUTICAL INC.-2012-024759

PATIENT
  Age: 52 Year
  Sex: Female
  Weight: 68 kg

DRUGS (7)
  1. INCIVEK [Suspect]
     Indication: HEPATITIS C
     Dosage: 750 mg, tid
     Route: 048
     Dates: start: 20121101
  2. RIBAVIRIN [Suspect]
     Indication: HEPATITIS C
     Dosage: 600 mg AM, 400 mg PM,
     Route: 048
     Dates: start: 20121101
  3. PEGASYS [Suspect]
     Indication: HEPATITIS C
     Dosage: 180 ?g, qw
     Route: 058
     Dates: start: 20121101
  4. AMBIEN [Concomitant]
     Dosage: 10 mg, prn
  5. IRON [Concomitant]
  6. PRIMROSE OIL [Concomitant]
  7. CALCIUM MAGNESIUM [Concomitant]

REACTIONS (8)
  - Oropharyngeal pain [Unknown]
  - Pharyngeal oedema [Recovered/Resolved]
  - Swollen tongue [Recovered/Resolved]
  - Ocular hyperaemia [Unknown]
  - Pharyngeal erythema [Unknown]
  - Oral candidiasis [Unknown]
  - Swelling face [Recovered/Resolved]
  - Oedema peripheral [Recovered/Resolved]
